FAERS Safety Report 8408364-9 (Version None)
Quarter: 2012Q2

REPORT INFORMATION
  Report Type: 
  Country: None (occurrence: None)
  Receive Date: 20120604
  Receipt Date: 20120529
  Transmission Date: 20120825
  Serious: Yes (Other)
  Sender: FDA-Public Use
  Company Number: US-BAYER-2012-053444

PATIENT
  Age: 39 Year
  Sex: Female

DRUGS (1)
  1. BEYAZ [Suspect]

REACTIONS (1)
  - DEEP VEIN THROMBOSIS [None]
